FAERS Safety Report 9596993 (Version 1)
Quarter: 2013Q4

REPORT INFORMATION
  Report Type: Spontaneous
  Country: FR (occurrence: FR)
  Receive Date: 20131004
  Receipt Date: 20131004
  Transmission Date: 20140711
  Serious: Yes (Hospitalization, Other)
  Sender: FDA-Public Use
  Company Number: FR-MERCK-1309FRA012724

PATIENT
  Age: 85 Year
  Sex: Female

DRUGS (10)
  1. TIENAM 500MG/500MG, POUDRE POUR PERFUSION [Suspect]
     Indication: URINARY TRACT INFECTION
     Dosage: 500 MG, TID
     Route: 042
     Dates: start: 20121119, end: 20121120
  2. KARDEGIC [Concomitant]
  3. PERINDOPRIL [Concomitant]
  4. NEUROTIN (ACETYLCARNITINE HYDROCHLORIDE) [Concomitant]
     Dosage: 200 MG, TID
     Dates: end: 20121120
  5. SEROPRAM [Concomitant]
  6. LYSANXIA [Concomitant]
  7. RISPERDAL [Concomitant]
     Dosage: UNK
     Dates: end: 20121122
  8. INEXIUM [Concomitant]
  9. FOLIC ACID [Concomitant]
  10. TARDYFERON [Concomitant]

REACTIONS (2)
  - Epilepsy [Recovered/Resolved]
  - Condition aggravated [Recovered/Resolved]
